FAERS Safety Report 17418716 (Version 1)
Quarter: 2020Q1

REPORT INFORMATION
  Report Type: Spontaneous
  Country: US (occurrence: US)
  Receive Date: 20200211
  Receipt Date: 20200211
  Transmission Date: 20200409
  Serious: Yes (Hospitalization, Other)
  Sender: FDA-Public Use
  Company Number: US-009507513-2002USA003008

PATIENT
  Age: 73 Year
  Sex: Male

DRUGS (25)
  1. TICE BCG [Suspect]
     Active Substance: BACILLUS CALMETTE-GUERIN SUBSTRAIN TICE LIVE ANTIGEN
     Dosage: CATHETER, WEEKLY
     Dates: start: 20180509
  2. TICE BCG [Suspect]
     Active Substance: BACILLUS CALMETTE-GUERIN SUBSTRAIN TICE LIVE ANTIGEN
     Dosage: CATHETER, WEEKLY
     Dates: start: 20190104
  3. TICE BCG [Suspect]
     Active Substance: BACILLUS CALMETTE-GUERIN SUBSTRAIN TICE LIVE ANTIGEN
     Dosage: CATHETER, WEEKLY
     Dates: start: 20180606
  4. TICE BCG [Suspect]
     Active Substance: BACILLUS CALMETTE-GUERIN SUBSTRAIN TICE LIVE ANTIGEN
     Dosage: ADMINISTERED UP HIS BACK INTO THE KIDNEY THROUGH HIS NEPHROSTOMY, WEEKLY
     Dates: start: 20190215
  5. TOLTERODINE [Concomitant]
     Active Substance: TOLTERODINE
     Dosage: 4 MILLIGRAM
  6. TICE BCG [Suspect]
     Active Substance: BACILLUS CALMETTE-GUERIN SUBSTRAIN TICE LIVE ANTIGEN
     Indication: BLADDER CANCER
     Dosage: CATHETER, WEEKLY
     Dates: start: 20121128
  7. TICE BCG [Suspect]
     Active Substance: BACILLUS CALMETTE-GUERIN SUBSTRAIN TICE LIVE ANTIGEN
     Dosage: CATHETER, WEEKLY
     Dates: start: 20180502
  8. TICE BCG [Suspect]
     Active Substance: BACILLUS CALMETTE-GUERIN SUBSTRAIN TICE LIVE ANTIGEN
     Dosage: CATHETER, WEEKLY
     Dates: start: 20180530
  9. MYRBETRIQ [Concomitant]
     Active Substance: MIRABEGRON
     Dosage: 50 MILLIGRAM
  10. ZYRTEC [Concomitant]
     Active Substance: CETIRIZINE HYDROCHLORIDE
  11. TICE BCG [Suspect]
     Active Substance: BACILLUS CALMETTE-GUERIN SUBSTRAIN TICE LIVE ANTIGEN
     Dosage: CATHETER, WEEKLY
     Dates: start: 20190111
  12. TICE BCG [Suspect]
     Active Substance: BACILLUS CALMETTE-GUERIN SUBSTRAIN TICE LIVE ANTIGEN
     Dosage: CATHETER, WEEKLY
     Dates: start: 20190125
  13. METFORMIN [Concomitant]
     Active Substance: METFORMIN HYDROCHLORIDE
     Dosage: 250 MILLIGRAM
  14. TICE BCG [Suspect]
     Active Substance: BACILLUS CALMETTE-GUERIN SUBSTRAIN TICE LIVE ANTIGEN
     Dosage: CATHETER, WEEKLY
     Dates: start: 20131218
  15. TICE BCG [Suspect]
     Active Substance: BACILLUS CALMETTE-GUERIN SUBSTRAIN TICE LIVE ANTIGEN
     Dosage: CATHETER, WEEKLY
     Dates: start: 20140423
  16. TICE BCG [Suspect]
     Active Substance: BACILLUS CALMETTE-GUERIN SUBSTRAIN TICE LIVE ANTIGEN
     Dosage: CATHETER, WEEKLY
     Dates: start: 20140806
  17. TICE BCG [Suspect]
     Active Substance: BACILLUS CALMETTE-GUERIN SUBSTRAIN TICE LIVE ANTIGEN
     Dosage: CATHETER, WEEKLY
     Dates: start: 20130603
  18. TICE BCG [Suspect]
     Active Substance: BACILLUS CALMETTE-GUERIN SUBSTRAIN TICE LIVE ANTIGEN
     Dosage: CATHETER, WEEKLY
     Dates: start: 20190208
  19. DOXAZOSIN [Concomitant]
     Active Substance: DOXAZOSIN MESYLATE
     Dosage: 8 MILLIGRAM
  20. CARVEDILOL. [Concomitant]
     Active Substance: CARVEDILOL
     Dosage: 3.125 MG
  21. TICE BCG [Suspect]
     Active Substance: BACILLUS CALMETTE-GUERIN SUBSTRAIN TICE LIVE ANTIGEN
     Dosage: CATHETER, WEEKLY
     Dates: start: 20131001
  22. ATORVASTATIN [Concomitant]
     Active Substance: ATORVASTATIN
  23. TICE BCG [Suspect]
     Active Substance: BACILLUS CALMETTE-GUERIN SUBSTRAIN TICE LIVE ANTIGEN
     Dosage: CATHETER, WEEKLY
     Dates: start: 20180516
  24. TICE BCG [Suspect]
     Active Substance: BACILLUS CALMETTE-GUERIN SUBSTRAIN TICE LIVE ANTIGEN
     Dosage: CATHETER, WEEKLY
     Dates: start: 20180523
  25. TICE BCG [Suspect]
     Active Substance: BACILLUS CALMETTE-GUERIN SUBSTRAIN TICE LIVE ANTIGEN
     Dosage: CATHETER, WEEKLY
     Dates: start: 20190118

REACTIONS (10)
  - Cataract [Unknown]
  - Respiratory disorder [Not Recovered/Not Resolved]
  - Knee arthroplasty [Unknown]
  - Ureteral disorder [Not Recovered/Not Resolved]
  - Nephrostomy [Not Recovered/Not Resolved]
  - Biopsy [Not Recovered/Not Resolved]
  - Bladder cancer recurrent [Not Recovered/Not Resolved]
  - Pollakiuria [Not Recovered/Not Resolved]
  - Renal impairment [Not Recovered/Not Resolved]
  - Knee arthroplasty [Unknown]

NARRATIVE: CASE EVENT DATE: 201410
